FAERS Safety Report 4291476-1 (Version None)
Quarter: 2004Q1

REPORT INFORMATION
  Report Type: 
  Country: None (occurrence: None)
  Receive Date: 20040126
  Receipt Date: 20030915
  Transmission Date: 20041129
  Serious: No
  Sender: FDA-Public Use
  Company Number: USA030947191

PATIENT
  Age: 75 Year
  Sex: Female

DRUGS (3)
  1. FORTEO [Suspect]
     Dates: start: 20030801
  2. PROCARDIA [Concomitant]
  3. THYROID TAB [Concomitant]

REACTIONS (1)
  - BLOOD SODIUM INCREASED [None]
